FAERS Safety Report 8121629 (Version 4)
Quarter: 2012Q4

REPORT INFORMATION
  Report Type: 
  Country: FR (occurrence: FR)
  Receive Date: 20110906
  Receipt Date: 20121024
  Transmission Date: 20130627
  Serious: Yes (Hospitalization, Disabling)
  Sender: FDA-Public Use
  Company Number: FR-GLAXOSMITHKLINE-B0696326A

PATIENT
  Age: 48 None
  Sex: Female

DRUGS (20)
  1. AVANDAMET [Suspect]
     Indication: TYPE 2 DIABETES MELLITUS
     Route: 048
     Dates: end: 20100616
  2. GLUCOPHAGE [Concomitant]
     Indication: TYPE 2 DIABETES MELLITUS
     Dosage: 1000MG Per day
     Route: 048
     Dates: start: 200403
  3. NISISCO [Concomitant]
     Dosage: 80MG Per day
     Route: 048
     Dates: start: 200804
  4. CELECTOL [Concomitant]
     Dosage: 1TAB Per day
     Route: 048
     Dates: start: 200804
  5. LEVOTHYROX [Concomitant]
     Dosage: 112.5MCG Per day
     Route: 048
  6. TARDYFERON [Concomitant]
     Route: 048
  7. DAFALGAN [Concomitant]
  8. ZALDIAR [Concomitant]
     Route: 048
  9. DEXERYL (FRANCE) [Concomitant]
     Route: 061
  10. BIAFINE [Concomitant]
     Route: 061
  11. PROZAC [Concomitant]
     Dosage: 20MG per day
     Route: 048
     Dates: start: 20091022
  12. ATARAX [Concomitant]
     Dosage: 25MG As required
     Route: 048
  13. LEXOMIL [Concomitant]
     Route: 048
  14. JANUVIA [Concomitant]
     Indication: DIABETES MELLITUS
     Dosage: 1TAB per day
     Route: 048
     Dates: start: 20100517
  15. CRESTOR [Concomitant]
     Indication: HYPERCHOLESTEROLAEMIA
     Dosage: 5MG per day
     Route: 048
     Dates: start: 20100517
  16. IDEOS [Concomitant]
     Route: 048
     Dates: start: 20100414
  17. INEXIUM [Concomitant]
     Dosage: 20MG per day
     Route: 048
     Dates: start: 20100512
  18. GAVISCON [Concomitant]
     Dosage: 2SAC per day
     Route: 048
     Dates: start: 20080529
  19. MOPRAL [Concomitant]
     Dosage: 20MG per day
     Route: 048
     Dates: start: 20100113
  20. ANTALGIC [Concomitant]
     Dates: start: 200804

REACTIONS (7)
  - Atrial fibrillation [Recovering/Resolving]
  - Angina pectoris [Unknown]
  - Asthenia [Unknown]
  - Malaise [Recovered/Resolved]
  - Tremor [Recovered/Resolved]
  - Cyanosis [Recovered/Resolved]
  - Chest pain [Recovered/Resolved]
